FAERS Safety Report 18490036 (Version 1)
Quarter: 2020Q4

REPORT INFORMATION
  Report Type: Spontaneous
  Country: US (occurrence: US)
  Receive Date: 20201111
  Receipt Date: 20201111
  Transmission Date: 20210114
  Serious: Yes (Hospitalization, Other)
  Sender: FDA-Public Use
  Company Number: US-PFIZER INC-2020437804

PATIENT
  Age: 60 Year
  Sex: Male
  Weight: 63.5 kg

DRUGS (1)
  1. ALPRAZOLAM. [Suspect]
     Active Substance: ALPRAZOLAM
     Indication: GENERALISED ANXIETY DISORDER
     Dosage: 1 MG, 4X/DAY
     Route: 048
     Dates: start: 1993

REACTIONS (17)
  - Nerve injury [Unknown]
  - Panic attack [Unknown]
  - Visual impairment [Unknown]
  - Chest discomfort [Unknown]
  - Illness [Unknown]
  - Loss of consciousness [Unknown]
  - Drug ineffective [Unknown]
  - Off label use [Unknown]
  - Product use in unapproved indication [Unknown]
  - Suicidal ideation [Unknown]
  - Hallucination [Unknown]
  - Swelling [Unknown]
  - Dizziness [Unknown]
  - Weight decreased [Recovering/Resolving]
  - Cyanosis [Unknown]
  - Thinking abnormal [Unknown]
  - Decreased appetite [Unknown]
